FAERS Safety Report 18852682 (Version 1)
Quarter: 2021Q1

REPORT INFORMATION
  Report Type: Spontaneous
  Country: BR (occurrence: BR)
  Receive Date: 20210205
  Receipt Date: 20210205
  Transmission Date: 20210420
  Serious: Yes (Hospitalization, Other)
  Sender: FDA-Public Use
  Company Number: BR-ASTRAZENECA-2021A022573

PATIENT
  Age: 45 Year
  Sex: Male

DRUGS (2)
  1. ZOLTEC [Interacting]
     Active Substance: FLUCONAZOLE
     Dosage: 2.0MG/ML UNKNOWN
     Route: 065
  2. CRESTOR [Suspect]
     Active Substance: ROSUVASTATIN CALCIUM
     Dosage: ONCE
     Route: 048

REACTIONS (8)
  - General physical health deterioration [Unknown]
  - Drug interaction [Unknown]
  - Abdominal distension [Unknown]
  - Rhabdomyolysis [Unknown]
  - Oesophageal candidiasis [Unknown]
  - Decreased appetite [Unknown]
  - Fall [Unknown]
  - Nausea [Unknown]

NARRATIVE: CASE EVENT DATE: 202009
